FAERS Safety Report 20763286 (Version 3)
Quarter: 2022Q3

REPORT INFORMATION
  Report Type: Report from Study
  Country: CA (occurrence: CA)
  Receive Date: 20220428
  Receipt Date: 20220901
  Transmission Date: 20221027
  Serious: Yes (Other)
  Sender: FDA-Public Use
  Company Number: CA-NOVARTISPH-NVSC2022CA095892

PATIENT
  Sex: Female

DRUGS (2)
  1. CLONAZEPAM [Suspect]
     Active Substance: CLONAZEPAM
     Indication: Secondary progressive multiple sclerosis
     Dosage: 1 MG QD (AT NIGHT)
     Route: 065
  2. BACLOFEN [Concomitant]
     Active Substance: BACLOFEN
     Indication: Product used for unknown indication
     Dosage: 40 MG, QD (AT NIGT)
     Route: 065

REACTIONS (5)
  - Expanded disability status scale score increased [Unknown]
  - Muscle spasms [Unknown]
  - Myoclonus [Unknown]
  - Sleep disorder [Unknown]
  - Product use in unapproved indication [Unknown]
